FAERS Safety Report 8758374 (Version 1)
Quarter: 2012Q4

REPORT INFORMATION
  Report Type: Spontaneous
  Country: US (occurrence: None)
  Receive Date: 20120828
  Receipt Date: 20120828
  Transmission Date: 20130627
  Serious: Yes (Life-Threatening)
  Sender: FDA-Public Use
  Company Number: None

PATIENT
  Age: 64 Year
  Sex: Female
  Weight: 67.13 kg

DRUGS (1)
  1. CYMBALTA [Suspect]
     Route: 048
     Dates: start: 20120629, end: 20120702

REACTIONS (12)
  - Feeling abnormal [None]
  - Somnolence [None]
  - Headache [None]
  - Abdominal pain [None]
  - Pyrexia [None]
  - Tremor [None]
  - Asthenia [None]
  - Blister [None]
  - Feeling abnormal [None]
  - Skin lesion [None]
  - Back pain [None]
  - Asthenia [None]
